FAERS Safety Report 9182984 (Version 1)
Quarter: 2013Q1

REPORT INFORMATION
  Report Type: Spontaneous
  Country: US (occurrence: US)
  Receive Date: 20130322
  Receipt Date: 20130322
  Transmission Date: 20140127
  Serious: Yes (Other)
  Sender: FDA-Public Use
  Company Number: US-BRISTOL-MYERS SQUIBB COMPANY-16421208

PATIENT
  Age: 52 Year
  Sex: Male
  Weight: 68 kg

DRUGS (2)
  1. ERBITUX [Suspect]
     Indication: RECTAL CANCER
     Dosage: 2ND TREATMENT ON 08FEB2012
     Dates: start: 20120201, end: 201202
  2. BEVACIZUMAB [Concomitant]
     Dosage: AVASTATIN

REACTIONS (2)
  - Acne [Unknown]
  - Swelling face [Unknown]
